FAERS Safety Report 23598753 (Version 2)
Quarter: 2024Q1

REPORT INFORMATION
  Report Type: Spontaneous
  Country: JP (occurrence: JP)
  Receive Date: 20240306
  Receipt Date: 20240320
  Transmission Date: 20240410
  Serious: Yes (Hospitalization)
  Sender: FDA-Public Use
  Company Number: JP-JNJFOC-20240309487

PATIENT

DRUGS (4)
  1. INVEGA [Suspect]
     Active Substance: PALIPERIDONE
     Indication: Schizophrenia
     Route: 048
  2. RISPERIDONE [Concomitant]
     Active Substance: RISPERIDONE
     Dosage: P.R.N
     Route: 048
  3. RIVOTRIL [Concomitant]
     Active Substance: CLONAZEPAM
     Dosage: DOSE UNKNOWN
     Route: 048
  4. BELSOMRA [Concomitant]
     Active Substance: SUVOREXANT
     Dosage: DOSE UNKNOWN
     Route: 048

REACTIONS (1)
  - Mental disorder [Unknown]
